FAERS Safety Report 6574504-X (Version None)
Quarter: 2010Q1

REPORT INFORMATION
  Report Type: 
  Country: None (occurrence: None)
  Receive Date: 20100209
  Receipt Date: 20091116
  Transmission Date: 20100710
  Serious: No
  Sender: FDA-Public Use
  Company Number: A0811814A

PATIENT
  Age: 62 Year
  Sex: Female

DRUGS (2)
  1. PAXIL [Suspect]
     Indication: DEPRESSION
     Dosage: 10MG PER DAY
     Route: 048
     Dates: start: 20091010
  2. LEVOTHROID [Concomitant]

REACTIONS (2)
  - SEDATION [None]
  - SOMNOLENCE [None]
